FAERS Safety Report 16174577 (Version 1)
Quarter: 2019Q2

REPORT INFORMATION
  Report Type: Spontaneous
  Country: US (occurrence: US)
  Receive Date: 20190306
  Receipt Date: 20190306
  Transmission Date: 20190711
  Serious: No
  Sender: FDA-Public Use
  Company Number: None

PATIENT
  Age: 57 Year
  Sex: Male

DRUGS (1)
  1. REPATHA [Suspect]
     Active Substance: EVOLOCUMAB
     Dates: start: 201801

REACTIONS (4)
  - Muscle injury [None]
  - Wrong technique in device usage process [None]
  - Urticaria [None]
  - Injection site haemorrhage [None]

NARRATIVE: CASE EVENT DATE: 20190306
